FAERS Safety Report 23313995 (Version 1)
Quarter: 2023Q4

REPORT INFORMATION
  Report Type: Spontaneous
  Country: FR (occurrence: FR)
  Receive Date: 20231219
  Receipt Date: 20231219
  Transmission Date: 20240109
  Serious: Yes (Other)
  Sender: FDA-Public Use
  Company Number: FR-ALNYLAM PHARMACEUTICALS, INC.-ALN-2023-006684

PATIENT

DRUGS (1)
  1. OXLUMO [Suspect]
     Active Substance: LUMASIRAN
     Indication: Primary hyperoxaluria
     Dosage: UNK MONTHLY ADMINISTRATION VS QUARTERLY
     Route: 065

REACTIONS (7)
  - Renal transplant [Unknown]
  - Drug ineffective [Unknown]
  - Overdose [Unknown]
  - Glomerular filtration rate decreased [Unknown]
  - Inappropriate schedule of product administration [Unknown]
  - Renal impairment [Unknown]
  - Dialysis [Unknown]
